FAERS Safety Report 5872950-0 (Version None)
Quarter: 2008Q3

REPORT INFORMATION
  Report Type: 
  Country: None (occurrence: None)
  Receive Date: 20080905
  Receipt Date: 20080825
  Transmission Date: 20090109
  Serious: Yes (Hospitalization, Other)
  Sender: FDA-Public Use
  Company Number: ZA-PFIZER INC-2008071537

PATIENT
  Age: 77 Year
  Sex: Male

DRUGS (10)
  1. ZITHROMAX UNO [Suspect]
     Route: 048
  2. ATORVASTATIN CALCIUM [Concomitant]
     Dosage: DAILY DOSE:20MG
     Route: 048
  3. DIOVAN HCT [Concomitant]
  4. ASPIRIN [Concomitant]
     Route: 048
  5. ISOPTIN [Concomitant]
  6. PURICOS [Concomitant]
     Dosage: DAILY DOSE:300MG
  7. SLOW-K [Concomitant]
     Dosage: DAILY DOSE:600MG
     Route: 048
  8. ALL OTHER THERAPEUTIC PRODUCTS [Concomitant]
     Dosage: DAILY DOSE:100MG
  9. SPIRICORT [Concomitant]
  10. OTHER ANTI-ASTHMATICS FOR SYSTEMIC USE [Concomitant]

REACTIONS (3)
  - DIARRHOEA [None]
  - GASTRIC HAEMORRHAGE [None]
  - NAUSEA [None]
